APPROVED DRUG PRODUCT: PENICILLIN G PROCAINE
Active Ingredient: PENICILLIN G PROCAINE
Strength: 1,500,000 UNITS/VIAL
Dosage Form/Route: INJECTABLE;INJECTION
Application: A060099 | Product #002
Applicant: PFIZER LABORATORIES DIV PFIZER INC
Approved: Approved Prior to Jan 1, 1982 | RLD: No | RS: No | Type: DISCN